FAERS Safety Report 18648018 (Version 1)
Quarter: 2020Q4

REPORT INFORMATION
  Report Type: Spontaneous
  Country: US (occurrence: US)
  Receive Date: 20201222
  Receipt Date: 20201222
  Transmission Date: 20210114
  Serious: Yes (Life-Threatening, Hospitalization, Other)
  Sender: FDA-Public Use
  Company Number: US-ACCORD-211533

PATIENT
  Age: 4 Year
  Sex: Female

DRUGS (3)
  1. MYCOPHENOLIC ACID. [Suspect]
     Active Substance: MYCOPHENOLIC ACID
     Indication: IMMUNOSUPPRESSANT DRUG THERAPY
  2. PREDNISONE. [Suspect]
     Active Substance: PREDNISONE
     Indication: IMMUNOSUPPRESSANT DRUG THERAPY
  3. TACROLIMUS. [Suspect]
     Active Substance: TACROLIMUS
     Indication: IMMUNOSUPPRESSANT DRUG THERAPY

REACTIONS (6)
  - Obstructive airways disorder [Recovered/Resolved]
  - Respiratory failure [Recovered/Resolved]
  - Post transplant lymphoproliferative disorder [Recovering/Resolving]
  - Mental status changes [Unknown]
  - Epiglottitis [Unknown]
  - Haemorrhage [Unknown]
